FAERS Safety Report 22157972 (Version 1)
Quarter: 2023Q1

REPORT INFORMATION
  Report Type: Spontaneous
  Country: US (occurrence: US)
  Receive Date: 20230330
  Receipt Date: 20230330
  Transmission Date: 20230417
  Serious: Yes (Hospitalization, Other)
  Sender: FDA-Public Use
  Company Number: US-TEVA-2023-US-2870150

PATIENT
  Age: 28 Year
  Sex: Female

DRUGS (6)
  1. HYDROXYZINE [Suspect]
     Active Substance: HYDROXYZINE HYDROCHLORIDE
     Indication: Drug withdrawal syndrome
     Route: 065
  2. ESCITALOPRAM [Suspect]
     Active Substance: ESCITALOPRAM OXALATE
     Indication: Drug withdrawal syndrome
     Route: 065
  3. DOMPERIDONE [Suspect]
     Active Substance: DOMPERIDONE
     Indication: Galactorrhoea
     Dosage: 90 MILLIGRAM DAILY; ONCE A DAY
     Route: 065
     Dates: start: 202106
  4. DOMPERIDONE [Suspect]
     Active Substance: DOMPERIDONE
     Dosage: 120 MILLIGRAM DAILY; ONCE A DAY
     Route: 065
     Dates: start: 2021
  5. DOMPERIDONE [Suspect]
     Active Substance: DOMPERIDONE
     Dosage: 100 MILLIGRAM DAILY; ONCE A DAY
     Route: 065
     Dates: start: 2021
  6. DOMPERIDONE [Suspect]
     Active Substance: DOMPERIDONE
     Dosage: 80 MILLIGRAM DAILY; ONCE A DAY
     Route: 065
     Dates: start: 2021

REACTIONS (23)
  - Anxiety [Recovered/Resolved]
  - Depression [Recovered/Resolved]
  - Hot flush [Unknown]
  - Night sweats [Unknown]
  - Alopecia [Unknown]
  - Dry eye [Not Recovered/Not Resolved]
  - Suicidal ideation [Recovered/Resolved]
  - Pollakiuria [Not Recovered/Not Resolved]
  - Decreased appetite [Not Recovered/Not Resolved]
  - Insomnia [Not Recovered/Not Resolved]
  - Hypohidrosis [Not Recovered/Not Resolved]
  - Suicide attempt [Not Recovered/Not Resolved]
  - Dry mouth [Not Recovered/Not Resolved]
  - Tachycardia [Not Recovered/Not Resolved]
  - Hypotension [Not Recovered/Not Resolved]
  - Body temperature fluctuation [Not Recovered/Not Resolved]
  - Thirst decreased [Not Recovered/Not Resolved]
  - Dysphagia [Not Recovered/Not Resolved]
  - Dyskinesia [Not Recovered/Not Resolved]
  - Drug withdrawal syndrome [Unknown]
  - Intentional product misuse [Unknown]
  - Off label use [Unknown]
  - Drug ineffective [Unknown]
